FAERS Safety Report 25029569 (Version 1)
Quarter: 2025Q1

REPORT INFORMATION
  Report Type: Spontaneous
  Country: US (occurrence: US)
  Receive Date: 20250303
  Receipt Date: 20250303
  Transmission Date: 20250409
  Serious: Yes (Hospitalization)
  Sender: CSL BEHRING
  Company Number: US-BEH-2025196717

PATIENT
  Age: 79 Year
  Sex: Female

DRUGS (1)
  1. PRIVIGEN [Suspect]
     Active Substance: HUMAN IMMUNOGLOBULIN G
     Indication: Mononeuropathy multiplex
     Route: 042
     Dates: start: 20221108

REACTIONS (2)
  - Incarcerated hernia [Unknown]
  - Off label use [Unknown]

NARRATIVE: CASE EVENT DATE: 20221108
